FAERS Safety Report 5130452-3 (Version None)
Quarter: 2006Q4

REPORT INFORMATION
  Report Type: 
  Country: None (occurrence: None)
  Receive Date: 20061013
  Receipt Date: 20060929
  Transmission Date: 20070319
  Serious: Yes (Hospitalization)
  Sender: FDA-Public Use
  Company Number: US200610000252

PATIENT
  Age: 64 Year
  Sex: Male

DRUGS (1)
  1. HUMULIN 70/30 [Suspect]
     Indication: DIABETES MELLITUS
     Dates: start: 19960101

REACTIONS (4)
  - CARDIAC OPERATION [None]
  - DIABETES MELLITUS INADEQUATE CONTROL [None]
  - MIGRAINE [None]
  - SPEECH DISORDER [None]
